FAERS Safety Report 11763696 (Version 1)
Quarter: 2015Q4

REPORT INFORMATION
  Report Type: Spontaneous
  Country: US (occurrence: US)
  Receive Date: 20151120
  Receipt Date: 20151120
  Transmission Date: 20160304
  Serious: No
  Sender: FDA-Public Use
  Company Number: US-ELI_LILLY_AND_COMPANY-US201301008348

PATIENT
  Age: 87 Year
  Sex: Female

DRUGS (2)
  1. FORTEO [Suspect]
     Active Substance: TERIPARATIDE
     Indication: OSTEOPOROSIS
     Dosage: UNK, QD
     Route: 065
     Dates: start: 201301
  2. FORTEO [Suspect]
     Active Substance: TERIPARATIDE
     Dosage: UNK, QD

REACTIONS (9)
  - Incorrect dose administered [Unknown]
  - Injection site reaction [Unknown]
  - Hearing impaired [Recovering/Resolving]
  - Injection site mass [Unknown]
  - Injection site pain [Unknown]
  - Intentional product use issue [Recovered/Resolved]
  - Incorrect product storage [Unknown]
  - Injection site bruising [Unknown]
  - Injection site induration [Unknown]

NARRATIVE: CASE EVENT DATE: 201301
